FAERS Safety Report 17731652 (Version 1)
Quarter: 2020Q2

REPORT INFORMATION
  Report Type: Spontaneous
  Country: MW (occurrence: MW)
  Receive Date: 20200501
  Receipt Date: 20200501
  Transmission Date: 20200714
  Serious: Yes (Other)
  Sender: FDA-Public Use
  Company Number: MW-SUN PHARMACEUTICAL INDUSTRIES LTD-2020R1-245593

PATIENT

DRUGS (1)
  1. QUININE [Suspect]
     Active Substance: QUININE
     Indication: MALARIA
     Dosage: UNK
     Route: 065

REACTIONS (1)
  - Auditory neuropathy spectrum disorder [Unknown]
